FAERS Safety Report 20644160 (Version 1)
Quarter: 2022Q1

REPORT INFORMATION
  Report Type: Spontaneous
  Country: JP (occurrence: JP)
  Receive Date: 20220328
  Receipt Date: 20220328
  Transmission Date: 20220423
  Serious: Yes (Life-Threatening, Hospitalization, Other)
  Sender: FDA-Public Use
  Company Number: JP-PFIZER INC-202200417904

PATIENT
  Age: 59 Year
  Sex: Female
  Weight: 113 kg

DRUGS (1)
  1. METHYLPREDNISOLONE SODIUM SUCCINATE [Suspect]
     Active Substance: METHYLPREDNISOLONE SODIUM SUCCINATE
     Indication: Henoch-Schonlein purpura
     Dosage: 125 MG
     Route: 042

REACTIONS (2)
  - Myxoedema [Recovered/Resolved]
  - Multiple organ dysfunction syndrome [Recovered/Resolved]
